FAERS Safety Report 16751135 (Version 3)
Quarter: 2019Q3

REPORT INFORMATION
  Report Type: Report from Study
  Country: US (occurrence: US)
  Receive Date: 20190828
  Receipt Date: 20190925
  Transmission Date: 20191005
  Serious: Yes (Hospitalization)
  Sender: FDA-Public Use
  Company Number: US-ACTELION-A-NJ2019-194735

PATIENT
  Sex: Female

DRUGS (2)
  1. OPSUMIT [Suspect]
     Active Substance: MACITENTAN
     Indication: PULMONARY ARTERIAL HYPERTENSION
     Dosage: 10 MG, QD
     Route: 048
     Dates: start: 20190604
  2. NEUPOGEN [Concomitant]
     Active Substance: FILGRASTIM

REACTIONS (2)
  - Hospitalisation [Unknown]
  - Renal failure [Unknown]

NARRATIVE: CASE EVENT DATE: 2019
